FAERS Safety Report 9272371 (Version 1)
Quarter: 2013Q2

REPORT INFORMATION
  Report Type: Spontaneous
  Country: US (occurrence: US)
  Receive Date: 20130506
  Receipt Date: 20130506
  Transmission Date: 20140414
  Serious: No
  Sender: FDA-Public Use
  Company Number: US-ASTRAZENECA-2012SE95708

PATIENT
  Age: 61 Year
  Sex: Female

DRUGS (3)
  1. PRILOSEC OTC [Suspect]
     Indication: PRODUCT USED FOR UNKNOWN INDICATION
     Route: 048
     Dates: start: 20121210
  2. METFORMIN [Concomitant]
     Dosage: UNKNOWN
  3. MINERAL SUPPLEMENTS [Concomitant]
     Dosage: UNKNOWN

REACTIONS (1)
  - Dysgeusia [Recovered/Resolved]
